FAERS Safety Report 24132023 (Version 2)
Quarter: 2024Q3

REPORT INFORMATION
  Report Type: Spontaneous
  Country: US (occurrence: US)
  Receive Date: 20240724
  Receipt Date: 20240805
  Transmission Date: 20241016
  Serious: Yes (Death, Other)
  Sender: PFIZER
  Company Number: US-PFIZER INC-202400220747

PATIENT
  Age: 79 Year
  Sex: Female
  Weight: 63.492 kg

DRUGS (1)
  1. VYNDAMAX [Suspect]
     Active Substance: TAFAMIDIS
     Indication: Cardiac amyloidosis
     Dosage: 61 MG, 1X/DAY
     Route: 048
     Dates: start: 20220923, end: 20240712

REACTIONS (5)
  - Cardiac arrest [Fatal]
  - End stage renal disease [Fatal]
  - Cardiac failure chronic [Fatal]
  - Rhinovirus infection [Fatal]
  - Hypervolaemia [Fatal]
